FAERS Safety Report 7541519-4 (Version None)
Quarter: 2011Q2

REPORT INFORMATION
  Report Type: 
  Country: None (occurrence: None)
  Receive Date: 20110613
  Receipt Date: 20110608
  Transmission Date: 20111010
  Serious: Yes (Other)
  Sender: FDA-Public Use
  Company Number: CN-BRISTOL-MYERS SQUIBB COMPANY-15552920

PATIENT
  Age: 62 Year
  Sex: Male

DRUGS (1)
  1. BARACLUDE [Suspect]
     Indication: HEPATITIS B
     Dosage: BEFORE JUN-2010,TAB AT 3PM; THEN SWITHCED TO 9PM,05DEC09
     Route: 048
     Dates: start: 20091104

REACTIONS (3)
  - HEPATIC NEOPLASM MALIGNANT [None]
  - GASTROINTESTINAL SOUNDS ABNORMAL [None]
  - ABNORMAL FAECES [None]
